FAERS Safety Report 17210813 (Version 1)
Quarter: 2019Q4

REPORT INFORMATION
  Report Type: Spontaneous
  Country: SE (occurrence: SE)
  Receive Date: 20191227
  Receipt Date: 20191227
  Transmission Date: 20200122
  Serious: Yes (Other)
  Sender: FDA-Public Use
  Company Number: SE-VERTEX PHARMACEUTICALS-2019-013649

PATIENT
  Sex: Female
  Weight: 45 kg

DRUGS (1)
  1. ORKAMBI [Suspect]
     Active Substance: IVACAFTOR\LUMACAFTOR
     Indication: CYSTIC FIBROSIS
     Dosage: HALF DOSE
     Route: 048
     Dates: start: 2018, end: 2019

REACTIONS (5)
  - Infective pulmonary exacerbation of cystic fibrosis [Not Recovered/Not Resolved]
  - Cardiac tamponade [Unknown]
  - Weight decreased [Unknown]
  - Pericarditis [Unknown]
  - Obstruction [Unknown]

NARRATIVE: CASE EVENT DATE: 2018
